FAERS Safety Report 16156731 (Version 1)
Quarter: 2019Q2

REPORT INFORMATION
  Report Type: Spontaneous
  Country: AR (occurrence: AR)
  Receive Date: 20190404
  Receipt Date: 20190404
  Transmission Date: 20190711
  Serious: Yes (Other)
  Sender: FDA-Public Use
  Company Number: PHHY2019AR074537

PATIENT
  Age: 34 Year
  Sex: Female

DRUGS (3)
  1. METHOTREXATE. [Suspect]
     Active Substance: METHOTREXATE
     Indication: BEHCET^S SYNDROME
     Dosage: 10 MG, QW
     Route: 048
  2. PREDNISONE. [Suspect]
     Active Substance: PREDNISONE
     Indication: BEHCET^S SYNDROME
     Dosage: 60 MG, QD
     Route: 048
  3. PREDNISONE. [Suspect]
     Active Substance: PREDNISONE
     Dosage: 30 MG, QD
     Route: 048

REACTIONS (14)
  - Eye infection syphilitic [Recovering/Resolving]
  - Vision blurred [Unknown]
  - Vitritis [Unknown]
  - Papillitis [Unknown]
  - Visual acuity reduced [Recovering/Resolving]
  - Chorioretinitis [Recovered/Resolved]
  - Eye pain [Unknown]
  - Chorioretinopathy [Recovering/Resolving]
  - Dysmetropsia [Unknown]
  - Vasculitis [Unknown]
  - Product use in unapproved indication [Unknown]
  - Syphilis [Recovering/Resolving]
  - Eye disorder [Recovering/Resolving]
  - Retinal detachment [Unknown]
